FAERS Safety Report 15263084 (Version 1)
Quarter: 2018Q3

REPORT INFORMATION
  Report Type: Spontaneous
  Country: TW (occurrence: TW)
  Receive Date: 20180810
  Receipt Date: 20180810
  Transmission Date: 20181010
  Serious: Yes (Other)
  Sender: FDA-Public Use
  Company Number: TW-ASTELLAS-2018US035364

PATIENT
  Age: 41 Year
  Sex: Female
  Weight: 40 kg

DRUGS (26)
  1. SUCRALFATE. [Concomitant]
     Active Substance: SUCRALFATE
     Indication: PROPHYLAXIS
     Route: 048
     Dates: start: 20180603
  2. BAKTAR [Concomitant]
     Active Substance: SULFAMETHOXAZOLE\TRIMETHOPRIM
     Indication: PROPHYLAXIS
     Route: 065
     Dates: start: 20180604
  3. TACROLIMUS. [Suspect]
     Active Substance: TACROLIMUS
     Indication: PROPHYLAXIS AGAINST TRANSPLANT REJECTION
     Dosage: 1 MG DAILY DOSE, EVERY 12 HOURS
     Route: 048
     Dates: start: 20180605, end: 201806
  4. CEFEPIME [Concomitant]
     Active Substance: CEFEPIME HYDROCHLORIDE
     Indication: PROPHYLAXIS
     Route: 041
     Dates: start: 20180603
  5. FENTANYL. [Concomitant]
     Active Substance: FENTANYL
     Indication: SEDATION
     Dosage: UNK UNK, UNKNOWN FREQ.
     Route: 065
     Dates: start: 20180604
  6. TACROLIMUS. [Suspect]
     Active Substance: TACROLIMUS
     Route: 048
     Dates: start: 2018
  7. VORICONAZOLE. [Concomitant]
     Active Substance: VORICONAZOLE
     Indication: PROPHYLAXIS
     Route: 041
     Dates: start: 20180604, end: 20180604
  8. BASILIXIMAB [Concomitant]
     Active Substance: BASILIXIMAB
     Indication: PROPHYLAXIS
     Dosage: 20 MG, UNKNOWN FREQ (STAT)
     Route: 041
     Dates: start: 20180603, end: 20180603
  9. VORICONAZOLE. [Concomitant]
     Active Substance: VORICONAZOLE
     Route: 048
  10. METHYLPREDNISOLONE. [Concomitant]
     Active Substance: METHYLPREDNISOLONE
     Indication: PRODUCT USED FOR UNKNOWN INDICATION
     Route: 065
     Dates: start: 20180604, end: 20180605
  11. TACROLIMUS. [Suspect]
     Active Substance: TACROLIMUS
     Route: 048
     Dates: start: 201806, end: 2018
  12. ACETYLCYSTEINE. [Concomitant]
     Active Substance: ACETYLCYSTEINE
     Indication: PROPHYLAXIS
     Route: 048
     Dates: start: 20180603
  13. ALPRAZOLAM. [Concomitant]
     Active Substance: ALPRAZOLAM
     Indication: PROPHYLAXIS
     Dosage: 0.5 MG, TWICE DAILY
     Route: 048
     Dates: start: 20180603
  14. VANCOMYCIN [Concomitant]
     Active Substance: VANCOMYCIN
     Indication: PROPHYLAXIS
     Route: 041
     Dates: start: 20180603
  15. BASILIXIMAB [Concomitant]
     Active Substance: BASILIXIMAB
     Dosage: 20 MG, UNKNOWN FREQ (STAT)
     Route: 041
     Dates: start: 20180608, end: 20180608
  16. MIDAZOLAM [Suspect]
     Active Substance: MIDAZOLAM HYDROCHLORIDE
     Indication: SEDATION
     Dosage: UNK, UNKNOWN FREQ.
     Route: 065
     Dates: start: 201806, end: 201806
  17. AMIZIDE [Concomitant]
     Indication: PROPHYLAXIS
     Dosage: 0.5 DF (UNIT DOSE), ONCE DAILY
     Route: 048
     Dates: start: 20180603
  18. SENNOSIDES A+B [Concomitant]
     Active Substance: SENNOSIDES A AND B
     Indication: PROPHYLAXIS
     Route: 048
     Dates: start: 20180603
  19. ASPIRIN. [Suspect]
     Active Substance: ASPIRIN
     Indication: CARDIOVASCULAR INSUFFICIENCY
     Route: 048
     Dates: start: 20180623, end: 20180626
  20. VORICONAZOLE. [Concomitant]
     Active Substance: VORICONAZOLE
     Route: 041
     Dates: start: 20180605, end: 20180605
  21. VORICONAZOLE. [Concomitant]
     Active Substance: VORICONAZOLE
     Indication: PROPHYLAXIS
     Route: 048
     Dates: start: 20180606
  22. DEXMEDETOMIDINE. [Concomitant]
     Active Substance: DEXMEDETOMIDINE
     Indication: SEDATION
     Dosage: UNK UNK, UNKNOWN FREQ.
     Route: 065
     Dates: start: 20180604
  23. BENZONATATE. [Concomitant]
     Active Substance: BENZONATATE
     Indication: PROPHYLAXIS
     Route: 048
     Dates: start: 20180603
  24. MOSAPRIDE [Concomitant]
     Active Substance: MOSAPRIDE
     Indication: PROPHYLAXIS
     Route: 048
     Dates: start: 20180603
  25. COMBIVENT [Concomitant]
     Active Substance: ALBUTEROL SULFATE\IPRATROPIUM BROMIDE
     Indication: PROPHYLAXIS
     Route: 065
     Dates: start: 20180603
  26. DOPAMINE [Concomitant]
     Active Substance: DOPAMINE\DOPAMINE HYDROCHLORIDE
     Indication: PRODUCT USED FOR UNKNOWN INDICATION
     Route: 065
     Dates: start: 20180604

REACTIONS (7)
  - Lung infiltration [Unknown]
  - Bacillus infection [Unknown]
  - Bacterial test positive [Unknown]
  - Cardiovascular insufficiency [Recovered/Resolved]
  - Blood pressure decreased [Recovered/Resolved]
  - Off label use [Unknown]
  - Purpura [Recovered/Resolved]

NARRATIVE: CASE EVENT DATE: 20180605
